FAERS Safety Report 6694209-4 (Version None)
Quarter: 2010Q2

REPORT INFORMATION
  Report Type: 
  Country: None (occurrence: None)
  Receive Date: 20100423
  Receipt Date: 20100412
  Transmission Date: 20101027
  Serious: Yes (Hospitalization)
  Sender: FDA-Public Use
  Company Number: ES-B.I. PHARMACEUTICALS,INC./RIDGEFIELD-2010-ES-00094ES

PATIENT
  Age: 76 Year
  Sex: Male

DRUGS (1)
  1. MOVALIS 15MG [Suspect]
     Indication: PSORIATIC ARTHROPATHY
     Dosage: 15 MG
     Route: 048
     Dates: start: 20090101, end: 20090730

REACTIONS (3)
  - CARDIAC FAILURE CONGESTIVE [None]
  - IRON DEFICIENCY ANAEMIA [None]
  - RENAL FAILURE [None]
